FAERS Safety Report 6731656-6 (Version None)
Quarter: 2010Q2

REPORT INFORMATION
  Report Type: 
  Country: None (occurrence: None)
  Receive Date: 20100519
  Receipt Date: 20100517
  Transmission Date: 20101027
  Serious: Yes (Hospitalization)
  Sender: FDA-Public Use
  Company Number: US-JNJFOC-20100401179

PATIENT
  Sex: Male

DRUGS (1)
  1. LEVAQUIN [Suspect]
     Indication: INFECTION PROPHYLAXIS
     Route: 048

REACTIONS (7)
  - DEPRESSION [None]
  - JOINT RANGE OF MOTION DECREASED [None]
  - MOOD SWINGS [None]
  - MUSCLE SPASMS [None]
  - TENDON PAIN [None]
  - TENDONITIS [None]
  - TENOSYNOVITIS [None]
